FAERS Safety Report 4508516-4 (Version None)
Quarter: 2004Q4

REPORT INFORMATION
  Report Type: 
  Country: None (occurrence: None)
  Receive Date: 20041123
  Receipt Date: 20040315
  Transmission Date: 20050328
  Serious: No
  Sender: FDA-Public Use
  Company Number: US-GLAXOSMITHKLINE-A0502869A

PATIENT
  Age: 61 Year
  Sex: Female

DRUGS (10)
  1. WELLBUTRIN SR [Suspect]
     Indication: ILL-DEFINED DISORDER
     Dosage: 1TAB TWICE PER DAY
     Route: 048
     Dates: start: 20040101, end: 20040101
  2. WELLBUTRIN XL [Suspect]
     Indication: ILL-DEFINED DISORDER
     Dosage: 150MG PER DAY
     Route: 048
     Dates: start: 20040309, end: 20040314
  3. ARIMIDEX [Concomitant]
  4. PROPRANOLOL [Concomitant]
  5. HYZAAR [Concomitant]
  6. DICLOFENAC [Concomitant]
  7. ZOMETA [Concomitant]
  8. ACIPHEX [Concomitant]
  9. CLONIDINE [Concomitant]
  10. SYNTHROID [Concomitant]

REACTIONS (10)
  - ABNORMAL DREAMS [None]
  - DEPRESSION [None]
  - DIZZINESS [None]
  - DRY MOUTH [None]
  - GINGIVAL PAIN [None]
  - GLOSSODYNIA [None]
  - HEADACHE [None]
  - MOOD ALTERED [None]
  - NAUSEA [None]
  - OEDEMA PERIPHERAL [None]
